FAERS Safety Report 10877854 (Version 2)
Quarter: 2015Q2

REPORT INFORMATION
  Report Type: Spontaneous
  Country: IT (occurrence: IT)
  Receive Date: 20150302
  Receipt Date: 20150522
  Transmission Date: 20150821
  Serious: Yes (Hospitalization)
  Sender: FDA-Public Use
  Company Number: IT-PFIZER INC-2015073323

PATIENT
  Age: 59 Year
  Sex: Female

DRUGS (5)
  1. CELEBREX [Suspect]
     Active Substance: CELECOXIB
     Dosage: 1 DF, DAILY
     Route: 048
     Dates: start: 20150131, end: 20150220
  2. BENTELAN [Suspect]
     Active Substance: BETAMETHASONE SODIUM PHOSPHATE
     Dosage: 1 DF, DAILY
     Route: 048
     Dates: start: 20150216, end: 20150224
  3. DELTACORTENE [Suspect]
     Active Substance: PREDNISONE
     Dosage: 1 DF, DAILY
     Route: 048
     Dates: start: 20150116, end: 20150213
  4. NEBILOX [Concomitant]
     Active Substance: NEBIVOLOL HYDROCHLORIDE
  5. MEPRAL [Concomitant]
     Active Substance: OMEPRAZOLE SODIUM
     Dosage: UNK
     Dates: start: 20150116, end: 20150224

REACTIONS (1)
  - Gastroduodenitis [Recovering/Resolving]

NARRATIVE: CASE EVENT DATE: 20150224
